FAERS Safety Report 9600139 (Version 1)
Quarter: 2013Q4

REPORT INFORMATION
  Report Type: Spontaneous
  Country: US (occurrence: US)
  Receive Date: 20131004
  Receipt Date: 20131004
  Transmission Date: 20140711
  Serious: No
  Sender: FDA-Public Use
  Company Number: US-AMGEN-USASP2013033096

PATIENT
  Age: 60 Year
  Sex: Female
  Weight: 72.56 kg

DRUGS (12)
  1. ENBREL [Suspect]
     Indication: PRODUCT USED FOR UNKNOWN INDICATION
     Dosage: 50 MG, QWK
     Route: 058
  2. HUMIRA [Concomitant]
     Indication: RHEUMATOID ARTHRITIS
     Dosage: 40MG/0.8
  3. MULTIVITAMINS, PLAIN [Concomitant]
     Dosage: UNK
  4. GLUCOSAMINE [Concomitant]
     Dosage: 200-300
  5. TYLENOL 8 HOUR [Concomitant]
     Dosage: 650 MG, UNK
  6. LISINOPRIL [Concomitant]
     Dosage: 2.5 MG, UNK
  7. PLAQUENIL                          /00072602/ [Concomitant]
     Dosage: 200 MG, UNK
  8. PREDNISONE [Concomitant]
     Dosage: 1 MG, UNK
  9. COSOPT [Concomitant]
     Dosage: 2-0.5%
     Route: 047
  10. FOLIC ACID [Concomitant]
     Dosage: 20 MG, UNK
  11. OXYCODONE [Concomitant]
     Dosage: 10 MG, UNK
  12. HYDROCHLOROTH [Concomitant]
     Dosage: 12.5 MG, UNK

REACTIONS (1)
  - Drug ineffective [Unknown]
